FAERS Safety Report 14373976 (Version 1)
Quarter: 2018Q1

REPORT INFORMATION
  Report Type: Report from Study
  Country: None (occurrence: US)
  Receive Date: 20180111
  Receipt Date: 20180111
  Transmission Date: 20180509
  Serious: Yes (Other)
  Sender: FDA-Public Use
  Company Number: US-ABBVIE-18K-163-2217686-00

PATIENT
  Sex: Female

DRUGS (1)
  1. HUMIRA [Suspect]
     Active Substance: ADALIMUMAB
     Indication: PSORIATIC ARTHROPATHY
     Route: 058
     Dates: start: 20171102

REACTIONS (6)
  - Joint stiffness [Unknown]
  - Systemic lupus erythematosus [Recovering/Resolving]
  - Rash [Unknown]
  - Appetite disorder [Recovering/Resolving]
  - Weight decreased [Unknown]
  - Exostosis [Unknown]

NARRATIVE: CASE EVENT DATE: 2017
